FAERS Safety Report 12577467 (Version 1)
Quarter: 2016Q3

REPORT INFORMATION
  Report Type: Spontaneous
  Country: CL (occurrence: CL)
  Receive Date: 20160720
  Receipt Date: 20160720
  Transmission Date: 20161109
  Serious: Yes (Death, Life-Threatening, Hospitalization)
  Sender: FDA-Public Use
  Company Number: CL-BIOMARINAP-CL-2016-109733

PATIENT
  Age: 12 Year
  Sex: Female
  Weight: 18 kg

DRUGS (1)
  1. ALDURAZYME [Suspect]
     Active Substance: LARONIDASE
     Indication: MUCOPOLYSACCHARIDOSIS I
     Dosage: 1.16 MG/KG, QOW
     Route: 041
     Dates: start: 20100825

REACTIONS (7)
  - Condition aggravated [Unknown]
  - Pyrexia [Unknown]
  - Pneumonia [Recovered/Resolved]
  - Pyrexia [Recovered/Resolved]
  - Respiratory symptom [Recovered/Resolved]
  - Respiratory disorder [Fatal]
  - Increased bronchial secretion [Unknown]

NARRATIVE: CASE EVENT DATE: 20160704
